FAERS Safety Report 7434427-0 (Version None)
Quarter: 2011Q2

REPORT INFORMATION
  Report Type: 
  Country: None (occurrence: None)
  Receive Date: 20110425
  Receipt Date: 20110414
  Transmission Date: 20111010
  Serious: Yes (Hospitalization)
  Sender: FDA-Public Use
  Company Number: DE-JNJFOC-20110310716

PATIENT
  Sex: Female
  Weight: 47 kg

DRUGS (6)
  1. NALOXONE HYDROCHLORIDE [Concomitant]
  2. PALEXIA [Suspect]
     Indication: DIABETIC NEUROPATHY
     Route: 048
     Dates: start: 20101111, end: 20101214
  3. HYDROMORPHONE HCL [Concomitant]
     Indication: DIABETIC NEUROPATHY
  4. PREGABALIN [Concomitant]
  5. TILIDINE HYDROCHLORIDE [Concomitant]
     Indication: DIABETIC NEUROPATHY
  6. NOVAMINSULFON [Concomitant]
     Indication: DIABETIC NEUROPATHY

REACTIONS (3)
  - NAUSEA [None]
  - DIARRHOEA [None]
  - DECREASED APPETITE [None]
